FAERS Safety Report 9160118 (Version 2)
Quarter: 2013Q2

REPORT INFORMATION
  Report Type: Spontaneous
  Country: JP (occurrence: JP)
  Receive Date: 20130313
  Receipt Date: 20130401
  Transmission Date: 20140414
  Serious: Yes (Other)
  Sender: FDA-Public Use
  Company Number: JP-ELI_LILLY_AND_COMPANY-JP201303002148

PATIENT
  Age: 56 Year
  Sex: Male

DRUGS (2)
  1. GEMZAR [Suspect]
     Indication: PANCREATIC CARCINOMA
     Route: 042
  2. TS 1                                    /JPN/ [Concomitant]
     Indication: PANCREATIC CARCINOMA
     Route: 048

REACTIONS (1)
  - Chronic myeloid leukaemia [Unknown]
